FAERS Safety Report 24903780 (Version 1)
Quarter: 2025Q1

REPORT INFORMATION
  Report Type: Spontaneous
  Country: US (occurrence: US)
  Receive Date: 20250130
  Receipt Date: 20250130
  Transmission Date: 20250408
  Serious: No
  Sender: Haleon PLC
  Company Number: US-HALEON-2225197

PATIENT
  Age: 60 Year
  Sex: Female

DRUGS (1)
  1. FLONASE SENSIMIST ALLERGY RELIEF [Suspect]
     Active Substance: FLUTICASONE FUROATE
     Indication: Ear infection

REACTIONS (9)
  - Palpitations [Unknown]
  - Throat tightness [Unknown]
  - Pruritus [Unknown]
  - Paraesthesia [Unknown]
  - Rash [Not Recovered/Not Resolved]
  - Rash [Unknown]
  - Discomfort [Unknown]
  - Off label use [Unknown]
  - Dizziness [Unknown]

NARRATIVE: CASE EVENT DATE: 20250122
